FAERS Safety Report 5529409-X (Version None)
Quarter: 2007Q4

REPORT INFORMATION
  Report Type: 
  Country: None (occurrence: None)
  Receive Date: 20071129
  Receipt Date: 20071127
  Transmission Date: 20080405
  Serious: Yes (Hospitalization, Other)
  Sender: FDA-Public Use
  Company Number: SE-ASTRAZENECA-2007SE03825

PATIENT
  Age: 29433 Day
  Sex: Male

DRUGS (8)
  1. ATACAND [Suspect]
     Indication: CARDIAC FAILURE
     Route: 048
     Dates: start: 20070418, end: 20070502
  2. ATACAND [Suspect]
     Route: 048
     Dates: start: 20070503, end: 20070620
  3. RAMIPRIL [Suspect]
     Indication: CARDIAC FAILURE
     Route: 048
     Dates: start: 20061215, end: 20070620
  4. SPIRONOLACTONE [Suspect]
     Indication: CARDIAC FAILURE
     Route: 048
     Dates: start: 20070118, end: 20070620
  5. SPIRONOLACTONE [Suspect]
     Route: 048
     Dates: start: 20070621
  6. BEHEPAN [Concomitant]
     Indication: VITAMIN B12 DEFICIENCY
     Route: 048
     Dates: start: 20061011
  7. ZOLPIDEM TARTRATE [Concomitant]
     Indication: SLEEP DISORDER
     Route: 048
     Dates: start: 20061115
  8. IMODIUM [Concomitant]
     Indication: DIARRHOEA
     Route: 048

REACTIONS (1)
  - HYPERKALAEMIA [None]
